FAERS Safety Report 8144017-2 (Version None)
Quarter: 2012Q1

REPORT INFORMATION
  Report Type: 
  Country: None (occurrence: None)
  Receive Date: 20120217
  Receipt Date: 20120217
  Transmission Date: 20120608
  Serious: Yes (Disabling)
  Sender: FDA-Public Use
  Company Number: None

PATIENT
  Age: 33 Year
  Sex: Female
  Weight: 75 kg

DRUGS (2)
  1. MIRENA [Suspect]
     Indication: PROPHYLAXIS
     Dosage: 20 MICROGRAMS
     Route: 067
     Dates: start: 20110121, end: 20120202
  2. MIRENA [Suspect]
     Indication: HAEMORRHAGE
     Dosage: 20 MICROGRAMS
     Route: 067
     Dates: start: 20110121, end: 20120202

REACTIONS (10)
  - PELVIC PAIN [None]
  - HAEMORRHAGE [None]
  - WEIGHT INCREASED [None]
  - NAUSEA [None]
  - ADNEXA UTERI PAIN [None]
  - HEADACHE [None]
  - MUSCLE SPASMS [None]
  - ACNE [None]
  - MOOD SWINGS [None]
  - POLLAKIURIA [None]
